FAERS Safety Report 9045504 (Version 1)
Quarter: 2013Q1

REPORT INFORMATION
  Report Type: Report from Study
  Country: US (occurrence: US)
  Receive Date: 20130131
  Receipt Date: 20130131
  Transmission Date: 20140127
  Serious: Yes (Other)
  Sender: FDA-Public Use
  Company Number: US-ABBOTT-12P-163-0996879-00

PATIENT
  Age: 19 None
  Sex: Male

DRUGS (1)
  1. HUMIRA [Suspect]
     Indication: CROHN^S DISEASE
     Dosage: 160MG ON DAY 1, 80MG ON DAY 15 AS DIRECTED
     Route: 058
     Dates: start: 201209

REACTIONS (2)
  - Surgery [Unknown]
  - Fatigue [Unknown]
